FAERS Safety Report 6382414-6 (Version None)
Quarter: 2009Q3

REPORT INFORMATION
  Report Type: 
  Country: None (occurrence: None)
  Receive Date: 20090930
  Receipt Date: 20090914
  Transmission Date: 20100115
  Serious: Yes (Other)
  Sender: FDA-Public Use
  Company Number: CHPA2009US19310

PATIENT
  Age: 50 Year
  Sex: Female

DRUGS (1)
  1. BENEFIBER UNKNOWN (NCH) [Suspect]
     Dosage: UNK

REACTIONS (2)
  - HYSTERECTOMY [None]
  - POLYP [None]
